FAERS Safety Report 8494667-9 (Version None)
Quarter: 2012Q3

REPORT INFORMATION
  Report Type: 
  Country: None (occurrence: None)
  Receive Date: 20120709
  Receipt Date: 20120703
  Transmission Date: 20120928
  Serious: Yes (Hospitalization, Other)
  Sender: FDA-Public Use
  Company Number: PHHY2012PL052037

PATIENT
  Age: 8 Year
  Sex: Male

DRUGS (4)
  1. TACROLIMUS [Interacting]
     Indication: IMMUNOSUPPRESSION
  2. AMOXICILLIN AND CLAVULANATE POTASSIUM [Suspect]
     Indication: UPPER RESPIRATORY TRACT INFECTION
  3. TACROLIMUS [Interacting]
     Indication: PROPHYLAXIS
  4. STEROIDS NOS [Concomitant]
     Indication: IMMUNOSUPPRESSION

REACTIONS (2)
  - DRUG INTERACTION [None]
  - JAUNDICE CHOLESTATIC [None]
